FAERS Safety Report 23097648 (Version 1)
Quarter: 2023Q4

REPORT INFORMATION
  Report Type: Other
  Country: CN (occurrence: CN)
  Receive Date: 20231023
  Receipt Date: 20231023
  Transmission Date: 20240109
  Serious: Yes (Hospitalization)
  Sender: FDA-Public Use
  Company Number: CN-GE HEALTHCARE-2023CSU009322

PATIENT
  Age: 58 Year
  Sex: Female
  Weight: 63 kg

DRUGS (4)
  1. VISIPAQUE [Suspect]
     Active Substance: IODIXANOL
     Indication: Imaging procedure
     Dosage: 32 GM, SINGLE
     Route: 037
     Dates: start: 20231009, end: 20231009
  2. VISIPAQUE [Suspect]
     Active Substance: IODIXANOL
     Indication: Angina unstable
  3. VISIPAQUE [Suspect]
     Active Substance: IODIXANOL
     Indication: Hypertension
  4. VISIPAQUE [Suspect]
     Active Substance: IODIXANOL
     Indication: Arteriosclerosis

REACTIONS (4)
  - Rash [Recovering/Resolving]
  - Pruritus [Recovering/Resolving]
  - Swelling face [Recovering/Resolving]
  - Off label use [Recovered/Resolved]

NARRATIVE: CASE EVENT DATE: 20231009
